FAERS Safety Report 4909605-2 (Version None)
Quarter: 2006Q1

REPORT INFORMATION
  Report Type: 
  Country: None (occurrence: None)
  Receive Date: 20060213
  Receipt Date: 20050307
  Transmission Date: 20060701
  Serious: Yes (Hospitalization)
  Sender: FDA-Public Use
  Company Number: US-MERCK-0503USA00899

PATIENT
  Age: 73 Year
  Sex: Male
  Weight: 114 kg

DRUGS (15)
  1. VIOXX [Suspect]
     Indication: OSTEOARTHRITIS
     Route: 048
     Dates: start: 20020601, end: 20040901
  2. VIOXX [Suspect]
     Route: 048
     Dates: start: 20001001, end: 20001101
  3. VIOXX [Suspect]
     Route: 048
     Dates: start: 20001101
  4. PRAVACHOL [Concomitant]
     Route: 048
  5. GARLIC [Concomitant]
     Route: 048
  6. ASPIRIN [Concomitant]
     Route: 048
  7. CALCIUM (UNSPECIFIED) [Concomitant]
     Route: 048
  8. POTASSIUM (UNSPECIFIED) [Concomitant]
     Route: 048
  9. ASCORBIC ACID [Concomitant]
     Route: 048
  10. VITAMIN E [Concomitant]
     Route: 048
  11. ZYLOPRIM [Concomitant]
     Route: 048
  12. VISTARIL [Concomitant]
     Route: 065
  13. MINERAL OIL [Concomitant]
     Route: 065
  14. MIRALAX [Concomitant]
     Route: 048
  15. ULTRAM [Concomitant]
     Route: 048

REACTIONS (15)
  - ACUTE MYOCARDIAL INFARCTION [None]
  - ARTERIOSCLEROSIS CORONARY ARTERY [None]
  - CARDIAC MURMUR [None]
  - CEREBRAL ATROPHY [None]
  - CEREBROVASCULAR ACCIDENT [None]
  - CONTUSION [None]
  - CORONARY ARTERY DISEASE [None]
  - CORONARY ARTERY OCCLUSION [None]
  - ENCEPHALOMALACIA [None]
  - FALL [None]
  - HYPERCHOLESTEROLAEMIA [None]
  - INJURY [None]
  - MITRAL VALVE CALCIFICATION [None]
  - TRANSIENT ISCHAEMIC ATTACK [None]
  - TRICUSPID VALVE INCOMPETENCE [None]
